FAERS Safety Report 6759044-7 (Version None)
Quarter: 2010Q2

REPORT INFORMATION
  Report Type: 
  Country: None (occurrence: None)
  Receive Date: 20100607
  Receipt Date: 20100528
  Transmission Date: 20101027
  Serious: Yes (Hospitalization)
  Sender: FDA-Public Use
  Company Number: CH-WYE-G06191610

PATIENT
  Age: 40 Year
  Sex: Female

DRUGS (2)
  1. PIPERACILLIN AND TAZOBACTAM [Suspect]
     Indication: OVARIAN ABSCESS
     Dosage: DOSE AND FREQUENCY UNKNOWN
     Route: 051
     Dates: start: 20100401, end: 20100505
  2. VANCOMYCIN HCL [Interacting]
     Indication: OVARIAN ABSCESS
     Dosage: UNKNOWN DOSE GIVEN 4 TIMES, THEN DOSE INCREASED TO 1 G 3 TIMES DAILY
     Route: 051
     Dates: start: 20100401, end: 20100505

REACTIONS (2)
  - DRUG INTERACTION [None]
  - RENAL FAILURE ACUTE [None]
